FAERS Safety Report 4336061-8 (Version None)
Quarter: 2004Q2

REPORT INFORMATION
  Report Type: 
  Country: None (occurrence: None)
  Receive Date: 20040406
  Receipt Date: 20040325
  Transmission Date: 20050107
  Serious: Yes (Hospitalization)
  Sender: FDA-Public Use
  Company Number: 2004AP00636

PATIENT
  Age: 89 Year
  Sex: Male

DRUGS (4)
  1. ZOLADEX [Suspect]
     Indication: PROSTATE CANCER
     Dosage: 3.6 MG Q4WK SQ
     Route: 058
     Dates: start: 20040128, end: 20040202
  2. FERRO-GRADUMET [Concomitant]
  3. CEFZON [Concomitant]
  4. SELBEX [Concomitant]

REACTIONS (1)
  - PNEUMONIA [None]
